FAERS Safety Report 4556743-2 (Version None)
Quarter: 2005Q1

REPORT INFORMATION
  Report Type: 
  Country: None (occurrence: None)
  Receive Date: 20050111
  Receipt Date: 20041018
  Transmission Date: 20050727
  Serious: Yes (Hospitalization, Other)
  Sender: FDA-Public Use
  Company Number: 2004S1000231

PATIENT
  Age: 60 Year
  Sex: Male
  Weight: 91 kg

DRUGS (13)
  1. CUBICIN [Suspect]
     Indication: CELLULITIS STAPHYLOCOCCAL
     Dosage: IV
     Route: 042
     Dates: start: 20040729, end: 20040918
  2. HYDROCHLOROTHIAZIDE [Concomitant]
  3. RAMIPRIL [Concomitant]
  4. METOPROLOL [Concomitant]
  5. IRBESARTAN [Concomitant]
  6. ISOSORBIDE [Concomitant]
  7. SIMVASTATIN [Concomitant]
  8. GEMFIBROZIL [Concomitant]
  9. HUMALOG [Concomitant]
  10. OMEPRAZOLE [Concomitant]
  11. AMITRIPTYLINE [Concomitant]
  12. ESCITALOPRAM [Concomitant]
  13. CEFEPIME [Concomitant]

REACTIONS (1)
  - RENAL FAILURE ACUTE [None]
